FAERS Safety Report 8419761-X (Version None)
Quarter: 2012Q2

REPORT INFORMATION
  Report Type: 
  Country: None (occurrence: None)
  Receive Date: 20120607
  Receipt Date: 20120529
  Transmission Date: 20120825
  Serious: Yes (Hospitalization, Other)
  Sender: FDA-Public Use
  Company Number: US-ACTELION-A-NJ2012-62266

PATIENT

DRUGS (5)
  1. REVATIO [Concomitant]
  2. LASIX [Concomitant]
  3. TRACLEER [Suspect]
     Indication: PULMONARY ARTERIAL HYPERTENSION
     Dosage: UNK
     Route: 048
     Dates: start: 20040813
  4. CALCIUM CHANNEL BLOCKERS [Concomitant]
  5. SPIRONOLACTONE [Concomitant]

REACTIONS (1)
  - LOWER LIMB FRACTURE [None]
